FAERS Safety Report 14051885 (Version 1)
Quarter: 2017Q4

REPORT INFORMATION
  Report Type: Spontaneous
  Country: US (occurrence: US)
  Receive Date: 20171006
  Receipt Date: 20171006
  Transmission Date: 20180321
  Serious: No
  Sender: FDA-Public Use
  Company Number: US-PFIZER INC-2017426490

PATIENT
  Age: 61 Year
  Sex: Female

DRUGS (6)
  1. LEVOFLOXACIN. [Suspect]
     Active Substance: LEVOFLOXACIN
     Dosage: UNK
  2. VANCOMYCIN HCL [Suspect]
     Active Substance: VANCOMYCIN HYDROCHLORIDE
     Dosage: UNK
  3. DILTIAZEM HCL [Suspect]
     Active Substance: DILTIAZEM HYDROCHLORIDE
     Dosage: UNK
  4. CIPROFLOXACIN. [Suspect]
     Active Substance: CIPROFLOXACIN
     Dosage: UNK
  5. CEFTRIAXONE SODIUM. [Suspect]
     Active Substance: CEFTRIAXONE SODIUM
     Dosage: UNK
  6. DAPTOMYCIN. [Suspect]
     Active Substance: DAPTOMYCIN
     Dosage: UNK

REACTIONS (1)
  - Drug hypersensitivity [Unknown]
